FAERS Safety Report 8443897-0 (Version None)
Quarter: 2012Q2

REPORT INFORMATION
  Report Type: 
  Country: None (occurrence: None)
  Receive Date: 20120618
  Receipt Date: 20120608
  Transmission Date: 20120825
  Serious: Yes (Other)
  Sender: FDA-Public Use
  Company Number: US-BAYER-2012-057636

PATIENT
  Sex: Female

DRUGS (1)
  1. YASMIN [Suspect]
     Indication: ACNE
     Dosage: UNK
     Dates: start: 20041101

REACTIONS (5)
  - FEAR [None]
  - INJURY [None]
  - BILIARY DYSKINESIA [None]
  - PAIN [None]
  - ANXIETY [None]
